FAERS Safety Report 8252287-5 (Version None)
Quarter: 2012Q2

REPORT INFORMATION
  Report Type: 
  Country: None (occurrence: None)
  Receive Date: 20120402
  Receipt Date: 20111013
  Transmission Date: 20120825
  Serious: No
  Sender: FDA-Public Use
  Company Number: US-ABBOTT-11P-163-0863565-00

PATIENT
  Sex: Male
  Weight: 98.972 kg

DRUGS (9)
  1. VITAMIN D [Concomitant]
     Indication: SUPPLEMENTATION THERAPY
  2. SIMVASTATIN [Concomitant]
     Indication: BLOOD CHOLESTEROL INCREASED
  3. ASPIRIN [Concomitant]
     Indication: PROPHYLAXIS
  4. TESTIM [Suspect]
     Indication: BLOOD TESTOSTERONE DECREASED
     Route: 062
     Dates: start: 20110901
  5. SYNTHROID [Concomitant]
     Indication: HYPOTHYROIDISM
  6. AMITRIPTYLINE HCL [Concomitant]
     Indication: PAIN
  7. LUMIGAN [Concomitant]
     Indication: GLAUCOMA
  8. TOPROL-XL [Concomitant]
     Indication: HYPERTENSION
     Dates: start: 20020101
  9. ANDROGEL [Suspect]
     Indication: BLOOD TESTOSTERONE DECREASED
     Dates: start: 20100901, end: 20110801

REACTIONS (1)
  - OEDEMA PERIPHERAL [None]
